FAERS Safety Report 20822944 (Version 1)
Quarter: 2022Q2

REPORT INFORMATION
  Report Type: Spontaneous
  Country: KR (occurrence: KR)
  Receive Date: 20220512
  Receipt Date: 20220512
  Transmission Date: 20220721
  Serious: Yes (Life-Threatening, Hospitalization, Disabling, Other)
  Sender: FDA-Public Use
  Company Number: KR-JNJFOC-20220505081

PATIENT

DRUGS (1)
  1. METHYLPHENIDATE HYDROCHLORIDE [Suspect]
     Active Substance: METHYLPHENIDATE HYDROCHLORIDE
     Indication: Attention deficit hyperactivity disorder
     Route: 048

REACTIONS (55)
  - Encephalopathy [Unknown]
  - Meningitis [Unknown]
  - Hyperventilation [Unknown]
  - Urinary retention [Unknown]
  - Oculogyric crisis [Unknown]
  - Tourette^s disorder [Unknown]
  - Sjogren^s syndrome [Unknown]
  - Suicide attempt [Unknown]
  - Xerophthalmia [Unknown]
  - Cardiac arrest [Unknown]
  - Disturbance in attention [Unknown]
  - Growth retardation [Unknown]
  - Haemorrhage intracranial [Unknown]
  - Weight increased [Unknown]
  - Livedo reticularis [Unknown]
  - Acne [Unknown]
  - Dyspepsia [Unknown]
  - Adverse drug reaction [Unknown]
  - Increased appetite [Unknown]
  - Neurosis [Unknown]
  - Amnesia [Unknown]
  - Yawning [Unknown]
  - Tinnitus [Unknown]
  - Apathy [Unknown]
  - Hyperkinesia [Unknown]
  - Migraine [Unknown]
  - Muscle contractions involuntary [Unknown]
  - Crying [Unknown]
  - Gynaecomastia [Unknown]
  - Pruritus genital [Unknown]
  - Palpitations [Unknown]
  - Confusional state [Unknown]
  - Weight decreased [Unknown]
  - Depression [Unknown]
  - Tachycardia [Unknown]
  - Affect lability [Unknown]
  - Libido decreased [Unknown]
  - Decreased appetite [Unknown]
  - Nausea [Unknown]
  - Somnolence [Unknown]
  - Headache [Unknown]
  - Anxiety [Unknown]
  - Nervousness [Unknown]
  - Agitation [Unknown]
  - Aggression [Unknown]
  - Vomiting [Unknown]
  - Abdominal pain [Unknown]
  - Diarrhoea [Unknown]
  - Dizziness [Unknown]
  - Condition aggravated [Unknown]
  - Fatigue [Unknown]
  - Dyskinesia [Unknown]
  - Sleep disorder [Unknown]
  - Visual impairment [Unknown]
  - Insomnia [Unknown]
